FAERS Safety Report 16749066 (Version 1)
Quarter: 2019Q3

REPORT INFORMATION
  Report Type: Other
  Country: GB (occurrence: GB)
  Receive Date: 20190828
  Receipt Date: 20190828
  Transmission Date: 20191005
  Serious: Yes (Hospitalization, Other)
  Sender: FDA-Public Use
  Company Number: GB-EMCURE PHARMACEUTICALS LTD-2019-EPL-0585

PATIENT
  Age: 56 Year
  Sex: Female

DRUGS (21)
  1. NEBIVOLOL. [Concomitant]
     Active Substance: NEBIVOLOL
     Dosage: 10 MILLIGRAM
  2. ACETYLSALICYLIC ACID [Concomitant]
     Active Substance: ASPIRIN
     Dosage: 75 MILLIGRAM, DAILY
  3. OMEPRAZOLE. [Concomitant]
     Active Substance: OMEPRAZOLE
     Dosage: 10 MILLIGRAM
  4. SPIRIVA [Concomitant]
     Active Substance: TIOTROPIUM BROMIDE MONOHYDRATE
     Dosage: 2.5MICROGRAMS/DOSE, DAILY
     Route: 055
  5. ACETYLSALICYLIC ACID [Concomitant]
     Active Substance: ASPIRIN
     Dosage: 100 MILLIGRAM
  6. NEBIVOLOL. [Concomitant]
     Active Substance: NEBIVOLOL
     Dosage: 2.5 MILLIGRAM, DAILY
  7. MORPHINE [Concomitant]
     Active Substance: MORPHINE
     Dosage: 10MG/5ML. 2.5-5ML EVERY 4 HOURS. NOT USING.
     Route: 048
  8. GABAPENTIN. [Concomitant]
     Active Substance: GABAPENTIN
     Dosage: 2700 MILLIGRAM,DAILY
  9. SALBUTAMOL [Concomitant]
     Active Substance: ALBUTEROL
     Dosage: 100MICROGRAMS/DOSE. INHALE 1 OR 2 PUFFS FOUR TIMES DAILY, AS NECESSARY
     Route: 055
  10. MORPHINE SULPHATE [Suspect]
     Active Substance: MORPHINE SULFATE
     Dosage: 10MG/5ML, 2.5-5ML EVERY 4 HOURS. NOT USING, AS REQUIRED
     Route: 048
  11. FUROSEMIDE. [Concomitant]
     Active Substance: FUROSEMIDE
     Dosage: 40 MILLIGRAM,DAILY, MORNING
  12. SYMBICORT [Concomitant]
     Active Substance: BUDESONIDE\FORMOTEROL FUMARATE DIHYDRATE
     Dosage: 6 DF 1 DAY, 200/6 TURBOHALER
  13. QVAR [Concomitant]
     Active Substance: BECLOMETHASONE DIPROPIONATE
     Dosage: 4 DF 1 DAY, 50 INHALER. NO LONGER USING
     Route: 055
  14. OMEPRAZOLE. [Concomitant]
     Active Substance: OMEPRAZOLE
     Dosage: 20 MILLIGRAM,GASTRO-RESISTANT CAPSULE
  15. MORPHINE [Concomitant]
     Active Substance: MORPHINE
     Dosage: 10 MILLIGRAM
  16. HYOSCINE BUTYLBROMIDE [Concomitant]
     Active Substance: BUTYLSCOPOLAMINE BROMIDE
     Dosage: 10 MILLIGRAM, 1-2 4X A DAY MAX 4 DAILY
     Route: 048
  17. SERTRALINE HYDROCHLORIDE. [Suspect]
     Active Substance: SERTRALINE HYDROCHLORIDE
     Indication: PRODUCT USED FOR UNKNOWN INDICATION
     Dosage: 100 MILLIGRAM
  18. FUROSEMIDE. [Concomitant]
     Active Substance: FUROSEMIDE
     Dosage: 10MG/5ML
     Route: 048
  19. ZOPICLONE [Concomitant]
     Active Substance: ZOPICLONE
     Dosage: 15 MILLIGRAM, AT NIGHT
  20. CONOTRANE                          /00604301/ [Concomitant]
     Dosage: AS NECESSARY, APPLY TO AFFECTED AREA REGULARLY
  21. GABAPENTIN. [Concomitant]
     Active Substance: GABAPENTIN
     Dosage: 100 MILLIGRAM
     Route: 048

REACTIONS (1)
  - Liver function test abnormal [Unknown]
